FAERS Safety Report 6344125-2 (Version None)
Quarter: 2009Q3

REPORT INFORMATION
  Report Type: 
  Country: None (occurrence: None)
  Receive Date: 20090904
  Receipt Date: 20090904
  Transmission Date: 20100115
  Serious: No
  Sender: FDA-Public Use
  Company Number: None

PATIENT
  Age: 52 Year
  Sex: Male
  Weight: 90.7194 kg

DRUGS (1)
  1. AMBIEN [Suspect]
     Indication: INSOMNIA
     Dosage: 1 PER NIGHT
     Dates: start: 20090404, end: 20090404

REACTIONS (3)
  - ABNORMAL BEHAVIOUR [None]
  - IMPRISONMENT [None]
  - MEMORY IMPAIRMENT [None]
